FAERS Safety Report 5069856-6 (Version None)
Quarter: 2006Q3

REPORT INFORMATION
  Report Type: 
  Country: None (occurrence: None)
  Receive Date: 20060802
  Receipt Date: 20060802
  Transmission Date: 20061208
  Serious: No
  Sender: FDA-Public Use
  Company Number: None

PATIENT
  Sex: Female

DRUGS (1)
  1. FLUNISOLIDE [Suspect]
     Indication: RHINITIS ALLERGIC
     Dosage: 1 SPRAY BID NASAL
     Route: 045

REACTIONS (1)
  - NASAL DISCOMFORT [None]
